FAERS Safety Report 19690191 (Version 1)
Quarter: 2021Q3

REPORT INFORMATION
  Report Type: Spontaneous
  Country: KR (occurrence: KR)
  Receive Date: 20210812
  Receipt Date: 20210812
  Transmission Date: 20211014
  Serious: Yes (Death, Other)
  Sender: FDA-Public Use
  Company Number: VN-UNITED THERAPEUTICS-UNT-2021-015128

PATIENT
  Age: 8 Month
  Sex: Female
  Weight: 8.27 kg

DRUGS (1)
  1. REMODULIN [Suspect]
     Active Substance: TREPROSTINIL
     Indication: PULMONARY ARTERIAL HYPERTENSION
     Dosage: 0.052 ?G/KG, CONTINUING
     Route: 058
     Dates: start: 20210520, end: 20210804

REACTIONS (1)
  - Death [Fatal]

NARRATIVE: CASE EVENT DATE: 20210804
